FAERS Safety Report 13792000 (Version 1)
Quarter: 2017Q3

REPORT INFORMATION
  Report Type: Spontaneous
  Country: US (occurrence: US)
  Receive Date: 20170725
  Receipt Date: 20170725
  Transmission Date: 20171127
  Serious: No
  Sender: FDA-Public Use
  Company Number: US-ROCHE-778524

PATIENT
  Sex: Female

DRUGS (3)
  1. INTERFERON ALFA-2A [Suspect]
     Active Substance: INTERFERON ALFA-2A
     Route: 065
  2. INTERFERON ALFA-2A [Suspect]
     Active Substance: INTERFERON ALFA-2A
     Indication: PRODUCT USED FOR UNKNOWN INDICATION
     Route: 065
  3. INTERFERON ALFA-2A [Suspect]
     Active Substance: INTERFERON ALFA-2A
     Route: 065

REACTIONS (2)
  - No adverse event [Unknown]
  - Treatment failure [Unknown]
